FAERS Safety Report 5580515-3 (Version None)
Quarter: 2007Q4

REPORT INFORMATION
  Report Type: 
  Country: None (occurrence: None)
  Receive Date: 20071231
  Receipt Date: 20071231
  Transmission Date: 20080405
  Serious: Yes (Hospitalization)
  Sender: FDA-Public Use
  Company Number: None

PATIENT
  Sex: Male
  Weight: 28.1 kg

DRUGS (3)
  1. DOXORUBICIN HYDROCHLORIDE [Suspect]
     Dosage: 75 MG
  2. METHOTREXATE [Suspect]
     Dosage: 11.8 MG
  3. CISPLATIN [Suspect]
     Dosage: 120 MG

REACTIONS (7)
  - CARDIAC FAILURE [None]
  - CARDIO-RESPIRATORY ARREST [None]
  - CYANOSIS [None]
  - DIARRHOEA [None]
  - EJECTION FRACTION DECREASED [None]
  - PULSE ABSENT [None]
  - VOMITING [None]
